FAERS Safety Report 5362874-X (Version None)
Quarter: 2007Q2

REPORT INFORMATION
  Report Type: 
  Country: None (occurrence: None)
  Receive Date: 20070615
  Receipt Date: 20061213
  Transmission Date: 20071010
  Serious: Yes (Other)
  Sender: FDA-Public Use
  Company Number: 2006VX002512

PATIENT
  Age: 53 Year
  Sex: Female
  Weight: 99.7913 kg

DRUGS (10)
  1. INTERFERON ALFACON-1 [Suspect]
     Indication: HEPATITIS C
     Dosage: 15 UG;QD;SC
     Route: 058
     Dates: start: 20061016, end: 20061204
  2. RIBAVIRIN [Concomitant]
  3. HUMULIN R [Concomitant]
  4. NORVASC [Concomitant]
  5. GLYBURIDE [Concomitant]
  6. QUINAPRIL [Concomitant]
  7. POTASSIUM ACETATE [Concomitant]
  8. EZETIMIBE [Concomitant]
  9. ASPIRIN [Concomitant]
  10. HYDROCHLOROTHIAZIDE [Concomitant]

REACTIONS (4)
  - ASTHENIA [None]
  - FATIGUE [None]
  - NIGHTMARE [None]
  - VISUAL DISTURBANCE [None]
